FAERS Safety Report 8904304 (Version 2)
Quarter: 2012Q4

REPORT INFORMATION
  Report Type: 
  Country: AU (occurrence: GB)
  Receive Date: 20121112
  Receipt Date: 20121206
  Transmission Date: 20130627
  Serious: Yes (Other)
  Sender: FDA-Public Use
  Company Number: AU-GLAXOSMITHKLINE-B0842964A

PATIENT
  Sex: Female

DRUGS (1)
  1. NEOTIGASON [Suspect]
     Indication: HYPERKERATOSIS
     Dosage: 10MG per day
     Route: 048
     Dates: start: 20120524, end: 20120612

REACTIONS (1)
  - Renal impairment [Recovering/Resolving]
